FAERS Safety Report 22027912 (Version 1)
Quarter: 2023Q1

REPORT INFORMATION
  Report Type: Spontaneous
  Country: US (occurrence: US)
  Receive Date: 20230223
  Receipt Date: 20230223
  Transmission Date: 20230418
  Serious: No
  Sender: FDA-Public Use
  Company Number: US-SA-SAC20230223000083

PATIENT
  Age: 49 Year
  Sex: Female

DRUGS (1)
  1. AUBAGIO [Suspect]
     Active Substance: TERIFLUNOMIDE
     Indication: Multiple sclerosis
     Dosage: 14 MG, QD
     Route: 048
     Dates: start: 20230105

REACTIONS (9)
  - Hypoaesthesia [Unknown]
  - Pain in extremity [Unknown]
  - Tremor [Unknown]
  - Bursitis [Unknown]
  - Hyperaesthesia [Unknown]
  - Nystagmus [Unknown]
  - Aphasia [Unknown]
  - Contusion [Unknown]
  - Paraesthesia [Unknown]
